FAERS Safety Report 22090868 (Version 2)
Quarter: 2024Q3

REPORT INFORMATION
  Report Type: Spontaneous
  Country: CA (occurrence: CA)
  Receive Date: 20230314
  Receipt Date: 20240814
  Transmission Date: 20241016
  Serious: Yes (Hospitalization, Other)
  Sender: BAXTER
  Company Number: CA-BAXTER-2023BAX015238

PATIENT
  Age: 9 Decade
  Sex: Male

DRUGS (12)
  1. DOXORUBICIN [Suspect]
     Active Substance: DOXORUBICIN
     Indication: Diffuse large B-cell lymphoma stage IV
     Dosage: 25.0 MG/M2, CYCLICAL, DOSAGE FORM: NOT SPECIFIED
     Route: 065
  2. DOXORUBICIN [Suspect]
     Active Substance: DOXORUBICIN
     Indication: Adenocarcinoma of colon
     Dosage: 2.5 MG/M2 (PEGYLATED LIPOSOMAL DOXORUBICIN HYDROCHLORIDE)
     Route: 065
  3. DOXORUBICIN [Suspect]
     Active Substance: DOXORUBICIN
     Dosage: UNK
     Route: 065
  4. CYCLOPHOSPHAMIDE [Suspect]
     Active Substance: CYCLOPHOSPHAMIDE
     Indication: Diffuse large B-cell lymphoma
     Dosage: 400 MG, DOSAGE FORM: NOT SPECIFIED (TRADE NAME: PROCYTOX)
     Route: 065
  5. PREDNISOLONE [Suspect]
     Active Substance: PREDNISOLONE
     Indication: Diffuse large B-cell lymphoma stage IV
     Dosage: 40.0 MG/M2, DOSAGE FORM: NOT SPECIFIED
     Route: 065
  6. PREDNISOLONE [Suspect]
     Active Substance: PREDNISOLONE
     Indication: Adenocarcinoma of colon
     Dosage: UNK
     Route: 065
  7. RITUXIMAB [Suspect]
     Active Substance: RITUXIMAB
     Indication: Diffuse large B-cell lymphoma stage IV
     Dosage: 375.0 MG/M2
     Route: 041
  8. RITUXIMAB [Suspect]
     Active Substance: RITUXIMAB
     Indication: Adenocarcinoma of colon
  9. VINCRISTINE SULFATE [Suspect]
     Active Substance: VINCRISTINE SULFATE
     Indication: Diffuse large B-cell lymphoma stage IV
     Dosage: 1 MG
     Route: 065
  10. VINCRISTINE SULFATE [Suspect]
     Active Substance: VINCRISTINE SULFATE
     Indication: Adenocarcinoma of colon
  11. DEXAMETHASONE [Concomitant]
     Active Substance: DEXAMETHASONE
     Dosage: UNK, DOSAGE FORM: NOT SPECIFIED
     Route: 065
  12. FILGRASTIM [Concomitant]
     Active Substance: FILGRASTIM
     Indication: Prophylaxis
     Dosage: UNK
     Route: 065

REACTIONS (6)
  - Device related thrombosis [Unknown]
  - Toxicity to various agents [Unknown]
  - Pleural effusion [Unknown]
  - Candida infection [Unknown]
  - Candida infection [Unknown]
  - Diarrhoea [Unknown]
